FAERS Safety Report 8611640-8 (Version None)
Quarter: 2012Q3

REPORT INFORMATION
  Report Type: 
  Country: None (occurrence: None)
  Receive Date: 20120822
  Receipt Date: 20120816
  Transmission Date: 20120928
  Serious: No
  Sender: FDA-Public Use
  Company Number: US-PFIZER INC-2012201268

PATIENT
  Age: 81 Year
  Sex: Male
  Weight: 61.2 kg

DRUGS (4)
  1. NEURONTIN [Suspect]
     Indication: OEDEMA PERIPHERAL
     Dosage: 300 MG, 3X/DAY
     Dates: start: 20120101, end: 20120101
  2. NEURONTIN [Suspect]
     Indication: PAIN IN EXTREMITY
     Dosage: 300 MG, 2X/DAY
     Dates: start: 20120101, end: 20120101
  3. NEURONTIN [Suspect]
     Dosage: 300 MG, DAILY
     Dates: start: 20120101
  4. METOPROLOL [Concomitant]
     Indication: HYPERTENSION
     Dosage: 100 MG, 2X/DAY

REACTIONS (19)
  - EYE MOVEMENT DISORDER [None]
  - DIZZINESS [None]
  - DYSKINESIA [None]
  - FATIGUE [None]
  - VISION BLURRED [None]
  - MEMORY IMPAIRMENT [None]
  - TREMOR [None]
  - GAIT DISTURBANCE [None]
  - OEDEMA PERIPHERAL [None]
  - SKIN DISCOLOURATION [None]
  - COORDINATION ABNORMAL [None]
  - INSOMNIA [None]
  - PAIN IN EXTREMITY [None]
  - DRUG INEFFECTIVE [None]
  - SOMNOLENCE [None]
  - SPEECH DISORDER [None]
  - CONFUSIONAL STATE [None]
  - DIPLOPIA [None]
  - FALL [None]
